FAERS Safety Report 5139353-8 (Version None)
Quarter: 2006Q4

REPORT INFORMATION
  Report Type: 
  Country: None (occurrence: None)
  Receive Date: 20061024
  Receipt Date: 20061013
  Transmission Date: 20070319
  Serious: Yes (Death)
  Sender: FDA-Public Use
  Company Number: 2006AL003163

PATIENT
  Age: 65 Year
  Sex: Male

DRUGS (3)
  1. DEXAMETHASONE [Suspect]
     Indication: B-CELL LYMPHOMA
  2. FLUDARABINE [Concomitant]
  3. MITOXANTRONE [Concomitant]

REACTIONS (1)
  - ACUTE PROMYELOCYTIC LEUKAEMIA [None]
